FAERS Safety Report 14258730 (Version 2)
Quarter: 2017Q4

REPORT INFORMATION
  Report Type: Spontaneous
  Country: BR (occurrence: BR)
  Receive Date: 20171207
  Receipt Date: 20171214
  Transmission Date: 20180321
  Serious: Yes (Other)
  Sender: FDA-Public Use
  Company Number: BR-ROCHE-2033698

PATIENT
  Sex: Male

DRUGS (4)
  1. RIVOTRIL [Suspect]
     Active Substance: CLONAZEPAM
     Indication: ALCOHOLISM
     Route: 065
     Dates: start: 2012
  2. LOSARTAN. [Concomitant]
     Active Substance: LOSARTAN
     Indication: HYPERTENSION
  3. OMEPRAZOLE. [Concomitant]
     Active Substance: OMEPRAZOLE
     Indication: PRODUCT USED FOR UNKNOWN INDICATION
  4. HYDROCHLOROTHIAZIDE. [Concomitant]
     Active Substance: HYDROCHLOROTHIAZIDE
     Indication: HYPERTENSION

REACTIONS (18)
  - Drug dependence [Unknown]
  - Fatigue [Unknown]
  - Drug dose omission [Unknown]
  - Off label use [Unknown]
  - Dyspnoea [Unknown]
  - Headache [Unknown]
  - Insomnia [Unknown]
  - Eye injury [Unknown]
  - Tremor [Unknown]
  - Upper limb fracture [Unknown]
  - Fall [Unknown]
  - Malaise [Unknown]
  - Confusional state [Unknown]
  - Syncope [Unknown]
  - Dizziness [Unknown]
  - Restlessness [Unknown]
  - Influenza [Unknown]
  - Drug effect incomplete [Unknown]
